FAERS Safety Report 5948092-2 (Version None)
Quarter: 2008Q4

REPORT INFORMATION
  Report Type: 
  Country: None (occurrence: None)
  Receive Date: 20081111
  Receipt Date: 20081101
  Transmission Date: 20090506
  Serious: Yes (Death, Life-Threatening)
  Sender: FDA-Public Use
  Company Number: CA-NOVOPROD-280652

PATIENT
  Age: 64 Year
  Sex: Male

DRUGS (3)
  1. NIASTASE [Suspect]
     Indication: HAEMORRHAGE
     Dosage: 25 UG/KG, SINGLE
     Route: 042
     Dates: start: 20080806, end: 20080806
  2. NIASTASE [Suspect]
     Dosage: 25 UG/KG, SINGLE
     Route: 042
     Dates: start: 20080806, end: 20080806
  3. NIASTASE [Suspect]
     Dosage: 30 UG/KG, SINGLE
     Route: 042
     Dates: start: 20080806, end: 20080806

REACTIONS (3)
  - CARDIOPULMONARY FAILURE [None]
  - PULMONARY ARTERY THROMBOSIS [None]
  - PULMONARY OEDEMA [None]
